FAERS Safety Report 6758880-0 (Version None)
Quarter: 2010Q2

REPORT INFORMATION
  Report Type: 
  Country: None (occurrence: None)
  Receive Date: 20100607
  Receipt Date: 20100525
  Transmission Date: 20101027
  Serious: Yes (Other)
  Sender: FDA-Public Use
  Company Number: PHHY2010US34305

PATIENT
  Sex: Female

DRUGS (13)
  1. RECLAST [Suspect]
     Dosage: UNK
  2. RECLAST [Suspect]
     Dosage: UNK
     Dates: start: 20091201
  3. CELEBREX [Concomitant]
  4. LASIX [Concomitant]
  5. PRAVACHOL [Concomitant]
  6. CALCITRIOL [Concomitant]
  7. DILANTIN [Concomitant]
  8. PHENOBARBITAL [Concomitant]
  9. LEVOTHYROXINE SODIUM [Concomitant]
  10. BENAZEPRIL HYDROCHLORIDE [Concomitant]
  11. CYCLOBENZAPRINE [Concomitant]
  12. TYLENOL [Concomitant]
  13. CALCIUM WITH VITAMIN D [Concomitant]

REACTIONS (7)
  - ARTHRALGIA [None]
  - BONE DISORDER [None]
  - CONVULSION [None]
  - HYPOCALCAEMIA [None]
  - MUSCLE SPASMS [None]
  - SKULL FRACTURE [None]
  - SPINAL FRACTURE [None]
